FAERS Safety Report 6018631-4 (Version None)
Quarter: 2008Q4

REPORT INFORMATION
  Report Type: 
  Country: None (occurrence: None)
  Receive Date: 20081223
  Receipt Date: 20081218
  Transmission Date: 20090506
  Serious: Yes (Other)
  Sender: FDA-Public Use
  Company Number: IE-PFIZER INC-2008093926

PATIENT

DRUGS (1)
  1. LIPITOR [Suspect]

REACTIONS (1)
  - OSTEOMYELITIS [None]
